FAERS Safety Report 6794078-8 (Version None)
Quarter: 2010Q2

REPORT INFORMATION
  Report Type: 
  Country: None (occurrence: None)
  Receive Date: 20100624
  Receipt Date: 20091020
  Transmission Date: 20101027
  Serious: No
  Sender: FDA-Public Use
  Company Number: US-PFIZER INC-2009288179

PATIENT
  Sex: Female

DRUGS (1)
  1. RELPAX [Suspect]
     Dosage: 40 MG, UNK

REACTIONS (1)
  - HEADACHE [None]
